FAERS Safety Report 18174350 (Version 2)
Quarter: 2021Q1

REPORT INFORMATION
  Report Type: Spontaneous
  Country: US (occurrence: US)
  Receive Date: 20200820
  Receipt Date: 20210212
  Transmission Date: 20210419
  Serious: Yes (Death, Hospitalization, Other)
  Sender: FDA-Public Use
  Company Number: US-ASTRAZENECA-2018SF26109

PATIENT
  Age: 18966 Day
  Sex: Male

DRUGS (47)
  1. NEXIUM [Suspect]
     Active Substance: ESOMEPRAZOLE MAGNESIUM
     Route: 048
     Dates: start: 2004, end: 2014
  2. PRILOSEC [Suspect]
     Active Substance: OMEPRAZOLE MAGNESIUM
     Indication: GASTROOESOPHAGEAL REFLUX DISEASE
     Route: 048
     Dates: start: 2004, end: 2014
  3. PRILOSEC [Suspect]
     Active Substance: OMEPRAZOLE MAGNESIUM
     Indication: GASTROOESOPHAGEAL REFLUX DISEASE
     Dosage: 40.0MG UNKNOWN
     Route: 048
     Dates: start: 2010, end: 2014
  4. INSULIN [Concomitant]
     Active Substance: INSULIN NOS
  5. LISINOPRIL. [Concomitant]
     Active Substance: LISINOPRIL
  6. SIMVASTATIN. [Concomitant]
     Active Substance: SIMVASTATIN
  7. TRILIPIX [Concomitant]
     Active Substance: FENOFIBRIC ACID
  8. FLUTICASONE PROPIONATE. [Concomitant]
     Active Substance: FLUTICASONE PROPIONATE
  9. HYDROMET [Concomitant]
     Active Substance: HOMATROPINE METHYLBROMIDE\HYDROCODONE BITARTRATE
  10. ULTRAM [Concomitant]
     Active Substance: TRAMADOL HYDROCHLORIDE
  11. MS CONTIN [Concomitant]
     Active Substance: MORPHINE SULFATE
  12. XANAX [Concomitant]
     Active Substance: ALPRAZOLAM
  13. TRAMADOL. [Concomitant]
     Active Substance: TRAMADOL
  14. FLEXERIL [Concomitant]
     Active Substance: CYCLOBENZAPRINE HYDROCHLORIDE
  15. ALLEGRA [Concomitant]
     Active Substance: FEXOFENADINE HYDROCHLORIDE
  16. VICODIN [Concomitant]
     Active Substance: ACETAMINOPHEN\HYDROCODONE BITARTRATE
  17. TRAZODONE [Concomitant]
     Active Substance: TRAZODONE HYDROCHLORIDE
  18. FUROSEMIDE. [Concomitant]
     Active Substance: FUROSEMIDE
  19. SODIUM CHLORIDE. [Concomitant]
     Active Substance: SODIUM CHLORIDE
  20. FLAGYL [Concomitant]
     Active Substance: METRONIDAZOLE\METRONIDAZOLE HYDROCHLORIDE
  21. VIIBRYD [Concomitant]
     Active Substance: VILAZODONE HYDROCHLORIDE
  22. OXYCODONE AND ACETAMINOPHEN [Concomitant]
     Active Substance: ACETAMINOPHEN\OXYCODONE HYDROCHLORIDE
  23. AMOXIL [Concomitant]
     Active Substance: AMOXICILLIN
  24. AUGMENTIN [Concomitant]
     Active Substance: AMOXICILLIN\CLAVULANATE POTASSIUM
  25. MEDROL [Concomitant]
     Active Substance: METHYLPREDNISOLONE
  26. COLCHICINE. [Concomitant]
     Active Substance: COLCHICINE
  27. VERAPAMIL [Concomitant]
     Active Substance: VERAPAMIL HYDROCHLORIDE
  28. PAXIL [Concomitant]
     Active Substance: PAROXETINE HYDROCHLORIDE
  29. ROCEPHIN [Concomitant]
     Active Substance: CEFTRIAXONE SODIUM
  30. MUCINEX [Concomitant]
     Active Substance: GUAIFENESIN
  31. ADALAT [Concomitant]
     Active Substance: NIFEDIPINE
  32. ASPIRIN. [Concomitant]
     Active Substance: ASPIRIN
  33. LORAZEPAM. [Concomitant]
     Active Substance: LORAZEPAM
  34. PROMETHAZINE HYDROCHLORIDE. [Concomitant]
     Active Substance: PROMETHAZINE HYDROCHLORIDE
  35. ZAROXOLYN [Concomitant]
     Active Substance: METOLAZONE
  36. NOVOLIN NOS [Concomitant]
     Active Substance: INSULIN HUMAN
  37. CIALIS [Concomitant]
     Active Substance: TADALAFIL
  38. ALLOPURINOL. [Concomitant]
     Active Substance: ALLOPURINOL
  39. EMLA [Concomitant]
     Active Substance: LIDOCAINE\PRILOCAINE
  40. AMBIEN [Concomitant]
     Active Substance: ZOLPIDEM TARTRATE
  41. LIDOCAINE. [Concomitant]
     Active Substance: LIDOCAINE
  42. PRILOSEC [Suspect]
     Active Substance: OMEPRAZOLE MAGNESIUM
     Indication: GASTROOESOPHAGEAL REFLUX DISEASE
     Dosage: DELAYED RELEASE40.0MG UNKNOWN
     Route: 048
  43. VALIUM [Concomitant]
     Active Substance: DIAZEPAM
  44. GABAPENTIN. [Concomitant]
     Active Substance: GABAPENTIN
  45. AMITIZA [Concomitant]
     Active Substance: LUBIPROSTONE
  46. PROMETHAZINE [Concomitant]
     Active Substance: PROMETHAZINE HYDROCHLORIDE
  47. ACETAMINOPHEN. [Concomitant]
     Active Substance: ACETAMINOPHEN

REACTIONS (5)
  - End stage renal disease [Unknown]
  - Acute kidney injury [Unknown]
  - Chronic kidney disease [Unknown]
  - Death [Fatal]
  - Renal failure [Unknown]

NARRATIVE: CASE EVENT DATE: 20110323
